FAERS Safety Report 6737876-9 (Version None)
Quarter: 2010Q2

REPORT INFORMATION
  Report Type: 
  Country: None (occurrence: None)
  Receive Date: 20100524
  Receipt Date: 20100518
  Transmission Date: 20101027
  Serious: Yes (Death, Hospitalization)
  Sender: FDA-Public Use
  Company Number: NL-ROCHE-672149

PATIENT
  Sex: Male

DRUGS (3)
  1. BEVACIZUMAB [Suspect]
     Route: 042
     Dates: start: 20091022, end: 20091125
  2. TEMSIROLIMUS [Suspect]
     Route: 042
     Dates: start: 20091022, end: 20091125
  3. TOLBUTAMIDE [Concomitant]
     Indication: BLOOD GLUCOSE INCREASED
     Route: 048
     Dates: start: 20091118, end: 20091125

REACTIONS (4)
  - INFARCTION [None]
  - MUCOSAL INFLAMMATION [None]
  - PNEUMONIA [None]
  - SOMNOLENCE [None]
